FAERS Safety Report 20051060 (Version 2)
Quarter: 2021Q4

REPORT INFORMATION
  Report Type: Spontaneous
  Country: US (occurrence: US)
  Receive Date: 20211110
  Receipt Date: 20211230
  Transmission Date: 20220303
  Serious: No
  Sender: FDA-Public Use
  Company Number: US-GSKCCFUS-Case-01212666_AE-71024

PATIENT
  Sex: Female
  Weight: 54 kg

DRUGS (2)
  1. FLOVENT HFA [Suspect]
     Active Substance: FLUTICASONE PROPIONATE
     Indication: Oesophagitis
     Dosage: 220 UG
     Route: 055
     Dates: start: 20210704, end: 20211116
  2. FLOVENT HFA [Suspect]
     Active Substance: FLUTICASONE PROPIONATE
     Indication: Lichen planus

REACTIONS (4)
  - Contusion [Not Recovered/Not Resolved]
  - Pigmentation disorder [Unknown]
  - Product use in unapproved indication [Unknown]
  - Drug ineffective for unapproved indication [Unknown]
